FAERS Safety Report 7933397-6 (Version None)
Quarter: 2011Q4

REPORT INFORMATION
  Report Type: 
  Country: None (occurrence: None)
  Receive Date: 20111122
  Receipt Date: 20111122
  Transmission Date: 20120403
  Serious: Yes (Life-Threatening)
  Sender: FDA-Public Use
  Company Number: None

PATIENT
  Age: 48 Year
  Sex: Female
  Weight: 67.131 kg

DRUGS (1)
  1. AZITHROMYCIN [Suspect]
     Indication: PNEUMONIA
     Dosage: 2 TABLETS FIRST DAY
     Route: 048
     Dates: start: 20111115, end: 20111117

REACTIONS (4)
  - URTICARIA [None]
  - GAIT DISTURBANCE [None]
  - SWELLING [None]
  - VOMITING [None]
